FAERS Safety Report 4738302-1 (Version None)
Quarter: 2005Q3

REPORT INFORMATION
  Report Type: 
  Country: None (occurrence: None)
  Receive Date: 20050803
  Receipt Date: 20050725
  Transmission Date: 20060218
  Serious: Yes (Life-Threatening)
  Sender: FDA-Public Use
  Company Number: 11901

PATIENT
  Age: 81 Year
  Sex: Male

DRUGS (6)
  1. FLUPHENAZINE HCL [Suspect]
     Indication: PARKINSON'S DISEASE
     Dosage: 2 MG TID
     Route: 048
  2. CALCIUM/VITAMIN D [Concomitant]
  3. PROCYCLIDINE HYDROCHLORIDE 2MG TAB [Concomitant]
  4. SERTRALINE HCL [Concomitant]
  5. LACTULOSE [Concomitant]
  6. SENNA [Concomitant]

REACTIONS (2)
  - NEUTROPENIA [None]
  - PANCYTOPENIA [None]
